FAERS Safety Report 8287861-3 (Version None)
Quarter: 2012Q2

REPORT INFORMATION
  Report Type: 
  Country: None (occurrence: None)
  Receive Date: 20120416
  Receipt Date: 20120416
  Transmission Date: 20120825
  Serious: No
  Sender: FDA-Public Use
  Company Number: US-PFIZER INC-2012087798

PATIENT
  Sex: Male

DRUGS (1)
  1. NICOTROL [Suspect]
     Dosage: UNK, ONCE EVERY HOUR OR AS NEEDED
     Route: 045

REACTIONS (2)
  - NASAL DISORDER [None]
  - NASAL DRYNESS [None]
